FAERS Safety Report 6547964-8 (Version None)
Quarter: 2010Q1

REPORT INFORMATION
  Report Type: 
  Country: None (occurrence: None)
  Receive Date: 20100124
  Receipt Date: 20091207
  Transmission Date: 20100710
  Serious: No
  Sender: FDA-Public Use
  Company Number: US-ALEXION-A200901051

PATIENT
  Sex: Male

DRUGS (4)
  1. SOLIRIS [Suspect]
     Indication: PAROXYSMAL NOCTURNAL HAEMOGLOBINURIA
     Dosage: 600 MG, QW
     Route: 042
     Dates: start: 20091009, end: 20091030
  2. SOLIRIS [Suspect]
     Dosage: 900 MG, Q2W
     Route: 042
     Dates: start: 20091106
  3. CIPRO                              /00697201/ [Concomitant]
     Dosage: UNK
     Route: 048
  4. FOLIC ACID [Suspect]
     Dosage: UNK

REACTIONS (2)
  - BACK PAIN [None]
  - PAIN IN EXTREMITY [None]
